FAERS Safety Report 5103120-1 (Version None)
Quarter: 2006Q3

REPORT INFORMATION
  Report Type: 
  Country: None (occurrence: None)
  Receive Date: 20060908
  Receipt Date: 20060828
  Transmission Date: 20061208
  Serious: Yes (Hospitalization, Other)
  Sender: FDA-Public Use
  Company Number: 2006AL002577

PATIENT
  Age: 20 Month
  Sex: Male

DRUGS (4)
  1. IBUPROFEN [Suspect]
     Indication: PAIN
     Dosage: 50 MG;QD;PO
     Route: 048
     Dates: start: 20060727, end: 20060730
  2. BENZYLPENICILLIN [Concomitant]
  3. FLUCLOXACILLIN [Concomitant]
  4. PARACETAMOL [Concomitant]

REACTIONS (1)
  - ACUTE PRERENAL FAILURE [None]
